FAERS Safety Report 5951136-5 (Version None)
Quarter: 2008Q4

REPORT INFORMATION
  Report Type: 
  Country: None (occurrence: None)
  Receive Date: 20081112
  Receipt Date: 20081112
  Transmission Date: 20090506
  Serious: Yes (Other)
  Sender: FDA-Public Use
  Company Number: None

PATIENT
  Age: 12 Year
  Sex: Male
  Weight: 40.8237 kg

DRUGS (2)
  1. CEFDINIR [Suspect]
     Indication: INFECTION
     Dosage: 300MG ONCE A DAY PO
     Route: 048
     Dates: start: 20081103, end: 20081110
  2. CEFDINIR [Suspect]
     Indication: SINUSITIS
     Dosage: 300MG ONCE A DAY PO
     Route: 048
     Dates: start: 20081103, end: 20081110

REACTIONS (7)
  - DIZZINESS [None]
  - OROPHARYNGEAL PAIN [None]
  - PHARYNGEAL OEDEMA [None]
  - PRURITUS [None]
  - PYREXIA [None]
  - RASH ERYTHEMATOUS [None]
  - SWELLING [None]
